FAERS Safety Report 22279211 (Version 3)
Quarter: 2023Q2

REPORT INFORMATION
  Report Type: Spontaneous
  Country: US (occurrence: US)
  Receive Date: 20230503
  Receipt Date: 20230605
  Transmission Date: 20230721
  Serious: No
  Sender: FDA-Public Use
  Company Number: US-BAYER-2023A060240

PATIENT
  Age: 46 Year
  Sex: Male

DRUGS (1)
  1. ASTEPRO [Suspect]
     Active Substance: AZELASTINE HYDROCHLORIDE
     Dosage: 1 SPRAY IN EACH NOSTRIL EVERY 12 HOURS
     Route: 045

REACTIONS (2)
  - Drug ineffective [Not Recovered/Not Resolved]
  - Allergic respiratory symptom [Unknown]
